FAERS Safety Report 8573666-2 (Version None)
Quarter: 2012Q3

REPORT INFORMATION
  Report Type: 
  Country: None (occurrence: None)
  Receive Date: 20120806
  Receipt Date: 20120803
  Transmission Date: 20120928
  Serious: No
  Sender: FDA-Public Use
  Company Number: US-PFIZER INC-2012189465

PATIENT
  Age: 65 Year
  Sex: Female
  Weight: 79.365 kg

DRUGS (5)
  1. COUMADIN [Concomitant]
     Dosage: UNK
  2. CALCIUM LACTATE [Concomitant]
     Indication: COW'S MILK INTOLERANCE
     Dosage: UNK
  3. PROVERA [Suspect]
     Indication: HORMONE THERAPY
     Dosage: 10 MG A DAY FOR 12 DAYS IN A MONTH
  4. PRILOSEC [Concomitant]
     Indication: DYSPEPSIA
     Dosage: UNK
  5. MEDROXYPROGESTERONE ACETATE [Suspect]
     Indication: HORMONE THERAPY
     Dosage: UNK

REACTIONS (3)
  - DRUG INEFFECTIVE [None]
  - MENSTRUAL DISORDER [None]
  - ABNORMAL WITHDRAWAL BLEEDING [None]
